FAERS Safety Report 25620754 (Version 1)
Quarter: 2025Q3

REPORT INFORMATION
  Report Type: Report from Study
  Country: US (occurrence: US)
  Receive Date: 20250730
  Receipt Date: 20250730
  Transmission Date: 20251020
  Serious: Yes (Other)
  Sender: ALEXION PHARMACEUTICALS
  Company Number: US-AstraZeneca-CH-00918595A

PATIENT
  Sex: Female

DRUGS (2)
  1. OLAPARIB [Suspect]
     Active Substance: OLAPARIB
     Indication: Breast cancer female
     Dates: start: 20250601
  2. VERZENIO [Concomitant]
     Active Substance: ABEMACICLIB
     Route: 065

REACTIONS (11)
  - Product dose omission issue [Unknown]
  - Gastrointestinal disorder [Unknown]
  - Impaired gastric emptying [Unknown]
  - Constipation [Unknown]
  - Dizziness [Unknown]
  - Fatigue [Unknown]
  - Hepatic enzyme increased [Unknown]
  - Abdominal distension [Unknown]
  - Gastrooesophageal reflux disease [Unknown]
  - Brain fog [Unknown]
  - Metastases to central nervous system [Unknown]
